FAERS Safety Report 18055161 (Version 1)
Quarter: 2020Q3

REPORT INFORMATION
  Report Type: Spontaneous
  Country: US (occurrence: US)
  Receive Date: 20200722
  Receipt Date: 20200722
  Transmission Date: 20201103
  Serious: No
  Sender: FDA-Public Use
  Company Number: US-ACCORD-158768

PATIENT
  Sex: Female

DRUGS (1)
  1. AMITRIPTYLINE [Suspect]
     Active Substance: AMITRIPTYLINE
     Indication: SLEEP DISORDER
     Dosage: STRENGTH: 50 MG
     Route: 048

REACTIONS (5)
  - Fibromyalgia [Recovered/Resolved]
  - Wrong dose [Unknown]
  - Off label use [Unknown]
  - Drug ineffective [Unknown]
  - Therapeutic response unexpected [Unknown]
